FAERS Safety Report 5416887-X (Version None)
Quarter: 2007Q3

REPORT INFORMATION
  Report Type: 
  Country: None (occurrence: None)
  Receive Date: 20070816
  Receipt Date: 20070807
  Transmission Date: 20080115
  Serious: Yes (Other)
  Sender: FDA-Public Use
  Company Number: CN-PFIZER INC-2007065751

PATIENT
  Age: 74 Year
  Sex: Male

DRUGS (3)
  1. LIPITOR [Suspect]
     Indication: CEREBRAL INFARCTION
     Dosage: DAILY DOSE:20MG
     Route: 048
  2. ASPIRIN [Concomitant]
     Route: 048
  3. ENOXAPARIN SODIUM [Concomitant]
     Route: 042

REACTIONS (4)
  - BLOOD CREATINE PHOSPHOKINASE INCREASED [None]
  - LIVIDITY [None]
  - MYALGIA [None]
  - SKIN DISCOLOURATION [None]
